FAERS Safety Report 24257543 (Version 1)
Quarter: 2024Q3

REPORT INFORMATION
  Report Type: Report from Study
  Country: TW (occurrence: TW)
  Receive Date: 20240828
  Receipt Date: 20240828
  Transmission Date: 20241017
  Serious: Yes (Other)
  Sender: UCB
  Company Number: TW-UCBSA-2024040154

PATIENT

DRUGS (1)
  1. LEVETIRACETAM [Suspect]
     Active Substance: LEVETIRACETAM
     Indication: Product used for unknown indication
     Dosage: UNK

REACTIONS (3)
  - Transient ischaemic attack [Unknown]
  - Haemorrhage [Unknown]
  - Anticoagulation drug level increased [Unknown]
